FAERS Safety Report 11606296 (Version 1)
Quarter: 2015Q4

REPORT INFORMATION
  Report Type: Report from Study
  Country: BR (occurrence: BR)
  Receive Date: 20151007
  Receipt Date: 20151007
  Transmission Date: 20160304
  Serious: Yes (Hospitalization, Other)
  Sender: FDA-Public Use
  Company Number: BR-ABBVIE-15K-020-1475260-00

PATIENT
  Sex: Female
  Weight: 79 kg

DRUGS (2)
  1. HUMIRA [Suspect]
     Active Substance: ADALIMUMAB
     Indication: RHEUMATOID ARTHRITIS
     Route: 058
     Dates: start: 20150423, end: 20150909
  2. HUMIRA [Suspect]
     Active Substance: ADALIMUMAB
     Route: 058
     Dates: start: 20150919

REACTIONS (11)
  - Wound [Unknown]
  - Pharyngeal oedema [Unknown]
  - Lymphocytosis [Unknown]
  - Diarrhoea [Unknown]
  - Paraesthesia [Unknown]
  - Skin exfoliation [Unknown]
  - Intestinal polyp [Unknown]
  - Nasal oedema [Unknown]
  - Salivary gland disorder [Unknown]
  - Inflammation [Unknown]
  - Swelling [Unknown]
